FAERS Safety Report 7854759-1 (Version None)
Quarter: 2011Q4

REPORT INFORMATION
  Report Type: 
  Country: None (occurrence: None)
  Receive Date: 20111026
  Receipt Date: 20110914
  Transmission Date: 20120403
  Serious: No
  Sender: FDA-Public Use
  Company Number: US-MUTUAL PHARMACEUTICAL COMPANY, INC.-CLCY20110128

PATIENT
  Sex: Female
  Weight: 74.91 kg

DRUGS (1)
  1. COLCRYS [Suspect]
     Indication: GOUT
     Route: 048
     Dates: start: 20110912, end: 20110914

REACTIONS (3)
  - DIARRHOEA [None]
  - INTENTIONAL OVERDOSE [None]
  - DRUG INEFFECTIVE [None]
